FAERS Safety Report 20008264 (Version 1)
Quarter: 2021Q4

REPORT INFORMATION
  Report Type: Spontaneous
  Country: US (occurrence: US)
  Receive Date: 20211028
  Receipt Date: 20211028
  Transmission Date: 20220303
  Serious: No
  Sender: FDA-Public Use
  Company Number: US-BAYER-2021A229972

PATIENT
  Sex: Male

DRUGS (2)
  1. STIVARGA [Suspect]
     Active Substance: REGORAFENIB
     Indication: Dyskinesia
     Dosage: DAILY DOSE 160 MG FOR 21 DAYS THEN 7 DAYS OFF
     Route: 048
     Dates: start: 20210916
  2. STIVARGA [Suspect]
     Active Substance: REGORAFENIB
     Indication: Parkinson^s disease

REACTIONS (2)
  - Palmar-plantar erythrodysaesthesia syndrome [Recovered/Resolved]
  - Off label use [None]
